FAERS Safety Report 16310566 (Version 2)
Quarter: 2019Q2

REPORT INFORMATION
  Report Type: Report from Study
  Country: IT (occurrence: IT)
  Receive Date: 20190514
  Receipt Date: 20190517
  Transmission Date: 20190711
  Serious: Yes (Other)
  Sender: FDA-Public Use
  Company Number: IT-MYLANLABS-2019M1044988

PATIENT
  Age: 73 Year
  Sex: Male

DRUGS (5)
  1. MOVICOL                            /06401201/ [Concomitant]
  2. SOLDESAM [Concomitant]
     Active Substance: DEXAMETHASONE
     Dosage: UNK
  3. PACLITAXEL. [Suspect]
     Active Substance: PACLITAXEL
     Indication: BLADDER CANCER
     Dosage: 114 MILLIGRAM, CYCLE
     Route: 042
     Dates: start: 20180918, end: 20181018
  4. FENTANYL. [Concomitant]
     Active Substance: FENTANYL
     Dosage: UNK
  5. CLEXANE [Concomitant]
     Active Substance: ENOXAPARIN SODIUM
     Dosage: UNK

REACTIONS (6)
  - Iron deficiency [Recovering/Resolving]
  - Pallor [Unknown]
  - Asthenia [Unknown]
  - Thrombocytopenia [Unknown]
  - Anaemia [Unknown]
  - Blood iron decreased [Unknown]

NARRATIVE: CASE EVENT DATE: 20181002
